FAERS Safety Report 4370701-2 (Version None)
Quarter: 2004Q2

REPORT INFORMATION
  Report Type: 
  Country: None (occurrence: None)
  Receive Date: 20040604
  Receipt Date: 20040328
  Transmission Date: 20050107
  Serious: Yes (Hospitalization, Other)
  Sender: FDA-Public Use
  Company Number: PHFR2004GB01588

PATIENT
  Age: 34 Year
  Sex: Male
  Weight: 73 kg

DRUGS (3)
  1. CLOZARIL [Suspect]
     Dosage: 100 MG OVERDOSE
     Route: 048
  2. RISPERIDONE [Concomitant]
     Indication: SCHIZOPHRENIA, PARANOID TYPE
     Dosage: 2 MG, BID
     Route: 048
  3. RISPERIDONE CONSTA [Concomitant]
     Indication: SCHIZOPHRENIA
     Dosage: 50 MG, QW2
     Route: 030

REACTIONS (5)
  - ACCIDENTAL EXPOSURE [None]
  - HYPERTENSION [None]
  - SEDATION [None]
  - SOMNOLENCE [None]
  - TACHYCARDIA [None]
